FAERS Safety Report 10409587 (Version 2)
Quarter: 2014Q4

REPORT INFORMATION
  Report Type: Spontaneous
  Country: US (occurrence: None)
  Receive Date: 20140604
  Receipt Date: 20141010
  Transmission Date: 20150528
  Serious: Yes (Other)
  Sender: FDA-Public Use
  Company Number: 163-POMAL-14050613

PATIENT
  Age: 74 Year
  Sex: Female
  Weight: 73.94 kg

DRUGS (22)
  1. ACYCLOVIR. [Concomitant]
     Active Substance: ACYCLOVIR
  2. MULTI FOR HER IRON [Concomitant]
  3. PREDNISONE. [Concomitant]
     Active Substance: PREDNISONE
  4. RAMIPRIL. [Concomitant]
     Active Substance: RAMIPRIL
  5. PACKED RED BLOOD CELLS [Concomitant]
     Active Substance: HUMAN RED BLOOD CELL
  6. SODIUM CHLORIDE. [Concomitant]
     Active Substance: SODIUM CHLORIDE
  7. TYLENOL [Concomitant]
     Active Substance: ACETAMINOPHEN
  8. ZOMETA [Concomitant]
     Active Substance: ZOLEDRONIC ACID
  9. ALLOPURINOL. [Concomitant]
     Active Substance: ALLOPURINOL
  10. PROCHLORPERAZINE MALEATE. [Concomitant]
     Active Substance: PROCHLORPERAZINE MALEATE
  11. ALLOPURINOL. [Concomitant]
     Active Substance: ALLOPURINOL
  12. FERROUS SULFATE [Concomitant]
     Active Substance: FERROUS SULFATE\FERROUS SULFATE, DRIED
  13. LEVAQUIN [Concomitant]
     Active Substance: LEVOFLOXACIN
  14. VITAMIN D3 [Concomitant]
     Active Substance: CHOLECALCIFEROL
  15. NEUPOGEN [Concomitant]
     Active Substance: FILGRASTIM
  16. ALKERAN [Concomitant]
     Active Substance: MELPHALAN
  17. HCTZ (HYDROCHLOROTHIAZIDE) [Concomitant]
     Active Substance: HYDROCHLOROTHIAZIDE
  18. POMALYST [Suspect]
     Active Substance: POMALIDOMIDE
     Indication: PLASMA CELL MYELOMA
     Dosage: 4 MG, 21 IN 28 D
     Route: 048
     Dates: start: 20131009
  19. MELPHALAN [Concomitant]
     Active Substance: MELPHALAN
  20. NEULASTA [Concomitant]
     Active Substance: PEGFILGRASTIM
  21. HYDROCODONE ACETAMINOPHEN [Concomitant]
     Active Substance: ACETAMINOPHEN\HYDROCODONE BITARTRATE
  22. METOPROLOL SUCCINATE. [Concomitant]
     Active Substance: METOPROLOL SUCCINATE

REACTIONS (2)
  - Cytopenia [None]
  - Full blood count decreased [None]

NARRATIVE: CASE EVENT DATE: 20131101
